FAERS Safety Report 10065672 (Version 9)
Quarter: 2015Q2

REPORT INFORMATION
  Report Type: Spontaneous
  Country: US (occurrence: US)
  Receive Date: 20140408
  Receipt Date: 20150416
  Transmission Date: 20150821
  Serious: Yes (Hospitalization, Other)
  Sender: FDA-Public Use
  Company Number: US-PFIZER INC-2014092563

PATIENT
  Age: 75 Year
  Sex: Male
  Weight: 78 kg

DRUGS (15)
  1. SUTENT [Suspect]
     Active Substance: SUNITINIB MALATE
     Indication: METASTATIC RENAL CELL CARCINOMA
     Dosage: 12.5 MG, CYCLIC (4X/DAY, 4 WEEKS ON AND 2 WEEKS OFF)
     Route: 048
     Dates: start: 20140208, end: 20140825
  2. SUTENT [Suspect]
     Active Substance: SUNITINIB MALATE
     Dosage: 3 WEEKS ON AND 3 WEEKS OFF (CYCLIC)
     Route: 048
     Dates: start: 20140906
  3. PANTOPRAZOLE [Concomitant]
     Active Substance: PANTOPRAZOLE SODIUM
     Dosage: UNK
  4. ADVAIR HFA [Concomitant]
     Active Substance: FLUTICASONE PROPIONATE\SALMETEROL XINAFOATE
     Dosage: UNK
  5. SYNTHROID [Concomitant]
     Active Substance: LEVOTHYROXINE SODIUM
     Dosage: 75 ?G, 1X/DAY
  6. SUTENT [Suspect]
     Active Substance: SUNITINIB MALATE
     Dosage: 50 MG, CYCLIC (3 WEEKS ON, 3 WEEKS OFF)
     Route: 048
     Dates: start: 201412
  7. FLOMAX [Concomitant]
     Active Substance: TAMSULOSIN HYDROCHLORIDE
     Dosage: UNK
  8. IRON [Concomitant]
     Active Substance: IRON
     Dosage: 325 MG, UNK
  9. SUTENT [Suspect]
     Active Substance: SUNITINIB MALATE
     Dosage: 50 MG CYCLIC (4 WEEKS ON AND 2 WEEKS OFF))
     Route: 048
  10. FIBER [Concomitant]
     Active Substance: PSYLLIUM HUSK
     Dosage: UNK
  11. SUTENT [Suspect]
     Active Substance: SUNITINIB MALATE
     Dosage: UNK, DAILY
     Dates: end: 20150311
  12. FINASTERIDE. [Concomitant]
     Active Substance: FINASTERIDE
     Dosage: UNK
  13. GLUCOSAMINE [Concomitant]
     Active Substance: GLUCOSAMINE
     Dosage: 1500 MG, UNK
  14. DIGOXIN. [Concomitant]
     Active Substance: DIGOXIN
     Dosage: UNK
  15. PROTONIX [Concomitant]
     Active Substance: PANTOPRAZOLE SODIUM
     Dosage: UNK

REACTIONS (27)
  - Pain in extremity [Unknown]
  - Palmar-plantar erythrodysaesthesia syndrome [Recovered/Resolved]
  - Thrombosis [Unknown]
  - Prostatic disorder [Unknown]
  - Anxiety [Unknown]
  - Vomiting [Unknown]
  - Constipation [Unknown]
  - Dysgeusia [Recovering/Resolving]
  - Stomatitis [Recovering/Resolving]
  - Tremor [Unknown]
  - Epistaxis [Recovered/Resolved]
  - Headache [Unknown]
  - Diverticulitis [Unknown]
  - Nausea [Unknown]
  - Platelet count decreased [Unknown]
  - Oral pain [Unknown]
  - Fall [Unknown]
  - Gastrointestinal haemorrhage [Unknown]
  - Pulmonary embolism [Unknown]
  - Melaena [Unknown]
  - Diarrhoea [Unknown]
  - Paraesthesia [Unknown]
  - Urinary tract infection bacterial [Unknown]
  - Mass [Unknown]
  - Thrombocytopenia [Recovered/Resolved]
  - Fatigue [Not Recovered/Not Resolved]
  - Glossodynia [Recovering/Resolving]

NARRATIVE: CASE EVENT DATE: 2014
